FAERS Safety Report 21540545 (Version 1)
Quarter: 2022Q4

REPORT INFORMATION
  Report Type: Spontaneous
  Country: IN (occurrence: IN)
  Receive Date: 20221102
  Receipt Date: 20221102
  Transmission Date: 20230113
  Serious: Yes (Other)
  Sender: FDA-Public Use
  Company Number: IN-SUN PHARMACEUTICAL INDUSTRIES LTD-2022R1-361672

PATIENT
  Age: 30 Year
  Sex: Male

DRUGS (1)
  1. CARBIDOPA AND LEVODOPA [Suspect]
     Active Substance: CARBIDOPA\LEVODOPA
     Indication: Holmes tremor
     Dosage: 3 DOSAGE FORM, DAILY
     Route: 065

REACTIONS (1)
  - Dyskinesia [Unknown]
